FAERS Safety Report 9281755 (Version 2)
Quarter: 2013Q4

REPORT INFORMATION
  Report Type: Spontaneous
  Country: US (occurrence: US)
  Receive Date: 20130510
  Receipt Date: 20131018
  Transmission Date: 20140711
  Serious: Yes (Hospitalization)
  Sender: FDA-Public Use
  Company Number: US-B.I. PHARMACEUTICALS,INC./RIDGEFIELD-2013-BI-12864BP

PATIENT
  Age: 71 Year
  Sex: Female
  Weight: 86.18 kg

DRUGS (20)
  1. PRADAXA [Suspect]
     Indication: ANTICOAGULANT THERAPY
     Dosage: 300 MG
     Route: 048
     Dates: start: 20120301, end: 20120507
  2. PRADAXA [Suspect]
     Indication: ATRIAL FIBRILLATION
  3. PRADAXA [Suspect]
     Indication: SICK SINUS SYNDROME
  4. VITAMIN D [Concomitant]
     Dosage: 50000 U
  5. NEXIUM [Concomitant]
     Dosage: 40 MG
  6. GUAIFENESIN [Concomitant]
     Dosage: 1600 MG
  7. NASAL SPRAY [Concomitant]
  8. VITAMINS AND MINERALS [Concomitant]
  9. ULTRAM [Concomitant]
     Dosage: 450 MG
     Route: 055
  10. ALBUTEROL [Concomitant]
     Indication: DYSPNOEA
     Route: 055
  11. ALBUTEROL/IPRATROPIUM [Concomitant]
     Route: 055
  12. ASPIRIN [Concomitant]
     Dosage: 325 MG
  13. LIPITOR [Concomitant]
     Dosage: 40 MG
  14. CLONAZEPAM [Concomitant]
  15. CARDIZEM [Concomitant]
     Dosage: 320 MG
  16. MULTAQ [Concomitant]
     Dosage: 1600 MG
  17. CYMBALTA [Concomitant]
     Dosage: 60 MG
  18. SINGULAIR [Concomitant]
     Dosage: 10 MG
  19. REQUIP [Concomitant]
     Dosage: 3 MG
  20. TIOTROPIUM [Concomitant]
     Dosage: 1 PUF

REACTIONS (1)
  - Gastrointestinal haemorrhage [Recovered/Resolved]
